FAERS Safety Report 6592817-2 (Version None)
Quarter: 2010Q1

REPORT INFORMATION
  Report Type: 
  Country: None (occurrence: None)
  Receive Date: 20100222
  Receipt Date: 20100215
  Transmission Date: 20100710
  Serious: Yes (Hospitalization, Other)
  Sender: FDA-Public Use
  Company Number: CA-TEVA-224756USA

PATIENT
  Age: 37 Year
  Sex: Male
  Weight: 81.72 kg

DRUGS (2)
  1. MERCAPTOPURINE [Suspect]
     Indication: COLITIS ULCERATIVE
     Route: 048
     Dates: start: 20050101, end: 20070101
  2. METHOTREXATE [Suspect]
     Dates: start: 20070101

REACTIONS (2)
  - ACCIDENTAL EXPOSURE [None]
  - ACUTE MYELOID LEUKAEMIA [None]
